FAERS Safety Report 14362985 (Version 1)
Quarter: 2018Q1

REPORT INFORMATION
  Report Type: Spontaneous
  Country: CA (occurrence: CA)
  Receive Date: 20180105
  Receipt Date: 20180105
  Transmission Date: 20180509
  Serious: Yes (Disabling, Other)
  Sender: FDA-Public Use
  Company Number: None

PATIENT
  Sex: Female
  Weight: 45 kg

DRUGS (2)
  1. MOMETASONE CREAM [Suspect]
     Active Substance: MOMETASONE
     Indication: ECZEMA
     Dosage: ?          OTHER STRENGTH:?;QUANTITY:1 ?;OTHER ROUTE:ON THE SKIN TOPICALLY?
     Route: 061
     Dates: start: 20120101, end: 20160131
  2. SYNTHROID [Concomitant]
     Active Substance: LEVOTHYROXINE SODIUM

REACTIONS (3)
  - Major depression [None]
  - Post-traumatic stress disorder [None]
  - Anxiety [None]

NARRATIVE: CASE EVENT DATE: 20160501
